FAERS Safety Report 12919289 (Version 1)
Quarter: 2016Q4

REPORT INFORMATION
  Report Type: Spontaneous
  Country: US (occurrence: US)
  Receive Date: 20161108
  Receipt Date: 20161108
  Transmission Date: 20170207
  Serious: Yes (Hospitalization, Other)
  Sender: FDA-Public Use
  Company Number: US-PFIZER INC-2016202529

PATIENT
  Sex: Male
  Weight: 100.7 kg

DRUGS (1)
  1. VFEND [Suspect]
     Active Substance: VORICONAZOLE
     Indication: COCCIDIOIDOMYCOSIS
     Dosage: 100 MG, 2X/DAY
     Route: 048
     Dates: start: 2000

REACTIONS (3)
  - Neoplasm [Recovered/Resolved with Sequelae]
  - Limb mass [Recovered/Resolved]
  - Tracheal mass [Recovered/Resolved]

NARRATIVE: CASE EVENT DATE: 2011
